FAERS Safety Report 14836641 (Version 3)
Quarter: 2018Q2

REPORT INFORMATION
  Report Type: Report from Study
  Country: US (occurrence: US)
  Receive Date: 20180502
  Receipt Date: 20180516
  Transmission Date: 20180711
  Serious: Yes (Hospitalization)
  Sender: FDA-Public Use
  Company Number: US-GILEAD-2018-0331180

PATIENT
  Age: 58 Year
  Sex: Male

DRUGS (5)
  1. ADCIRCA [Concomitant]
     Active Substance: TADALAFIL
  2. AMBRISENTAN [Suspect]
     Active Substance: AMBRISENTAN
     Indication: PRODUCT USED FOR UNKNOWN INDICATION
     Dosage: 5 MG, QD
     Route: 065
  3. REMODULIN [Concomitant]
     Active Substance: TREPROSTINIL
  4. AMBRISENTAN [Suspect]
     Active Substance: AMBRISENTAN
     Dosage: 10 MG, QD
     Route: 065
     Dates: start: 20180425
  5. ELIQUIS [Concomitant]
     Active Substance: APIXABAN

REACTIONS (5)
  - Pyrexia [Unknown]
  - Fluid retention [Not Recovered/Not Resolved]
  - Drug hypersensitivity [Unknown]
  - Staphylococcal infection [Unknown]
  - Skin disorder [Unknown]
